FAERS Safety Report 17719344 (Version 1)
Quarter: 2020Q2

REPORT INFORMATION
  Report Type: Spontaneous
  Country: US (occurrence: US)
  Receive Date: 20200428
  Receipt Date: 20200428
  Transmission Date: 20200714
  Serious: No
  Sender: FDA-Public Use
  Company Number: US-TEVA-2020-US-1226567

PATIENT
  Sex: Female

DRUGS (2)
  1. VENLAFAXINE HYDROCHLORIDE TEVA [Suspect]
     Active Substance: VENLAFAXINE HYDROCHLORIDE
     Indication: HOT FLUSH
  2. VENLAFAXINE HYDROCHLORIDE TEVA [Suspect]
     Active Substance: VENLAFAXINE HYDROCHLORIDE
     Indication: ANXIETY
     Dosage: 37.5 MG
     Route: 048

REACTIONS (2)
  - Hypersomnia [Unknown]
  - Product use in unapproved indication [Unknown]
